FAERS Safety Report 23650039 (Version 1)
Quarter: 2024Q1

REPORT INFORMATION
  Report Type: Spontaneous
  Country: US (occurrence: None)
  Receive Date: 20240319
  Receipt Date: 20240319
  Transmission Date: 20240409
  Serious: No
  Sender: FDA-Public Use
  Company Number: US-ROCHE-3402484

PATIENT
  Sex: Female

DRUGS (1)
  1. ERIVEDGE [Suspect]
     Active Substance: VISMODEGIB
     Indication: Basal cell carcinoma
     Route: 048
     Dates: start: 202303

REACTIONS (5)
  - Decreased appetite [Unknown]
  - Taste disorder [Unknown]
  - Alopecia [Unknown]
  - Oral pain [Unknown]
  - Oropharyngeal pain [Unknown]
